FAERS Safety Report 8823690 (Version 1)
Quarter: 2012Q4

REPORT INFORMATION
  Report Type: 
  Country: US (occurrence: US)
  Receive Date: 20121003
  Receipt Date: 20121003
  Transmission Date: 20130627
  Serious: No
  Sender: FDA-Public Use
  Company Number: US-PFIZER INC-2012243122

PATIENT
  Age: 24 Year
  Sex: Female
  Weight: 48.98 kg

DRUGS (2)
  1. ADVIL CONGESTION RELIEF [Suspect]
     Indication: NASAL CONGESTION
     Dosage: 200/10 mg, three tablets once at night
     Route: 048
     Dates: start: 20120930, end: 20121001
  2. ADVIL CONGESTION RELIEF [Suspect]
     Indication: NASOPHARYNGITIS

REACTIONS (2)
  - Incorrect dose administered [Unknown]
  - Rash [Not Recovered/Not Resolved]
